FAERS Safety Report 9169184 (Version 3)
Quarter: 2013Q2

REPORT INFORMATION
  Report Type: Report from Study
  Country: US (occurrence: US)
  Receive Date: 20130318
  Receipt Date: 20130501
  Transmission Date: 20140414
  Serious: Yes (Life-Threatening, Hospitalization)
  Sender: FDA-Public Use
  Company Number: US-ROCHE-1198036

PATIENT
  Age: 40 Year
  Sex: Female
  Weight: 46.8 kg

DRUGS (4)
  1. TRASTUZUMAB EMTANSINE [Suspect]
     Indication: BREAST CANCER
     Dosage: DATE OF MOST RECENT DOSE: 21/FEB/2013
     Route: 042
     Dates: start: 20130131
  2. VICODIN [Concomitant]
     Route: 048
  3. FLEXERIL [Concomitant]
     Route: 048
  4. REGLAN [Concomitant]
     Route: 048

REACTIONS (2)
  - Dyspnoea [Unknown]
  - Hyponatraemia [Recovered/Resolved]
